FAERS Safety Report 20437375 (Version 3)
Quarter: 2022Q2

REPORT INFORMATION
  Report Type: Report from Study
  Country: US (occurrence: US)
  Receive Date: 20220207
  Receipt Date: 20220421
  Transmission Date: 20220721
  Serious: Yes (Other)
  Sender: FDA-Public Use
  Company Number: US-ABBVIE-22K-163-4235525-00

PATIENT
  Sex: Female

DRUGS (4)
  1. HUMIRA [Suspect]
     Active Substance: ADALIMUMAB
     Indication: Psoriatic arthropathy
     Route: 058
  2. HUMIRA [Suspect]
     Active Substance: ADALIMUMAB
     Indication: Psoriasis
  3. HUMIRA [Suspect]
     Active Substance: ADALIMUMAB
     Indication: Rheumatoid arthritis
  4. MODERNA COVID-19 VACCINE [Concomitant]
     Active Substance: ELASOMERAN
     Indication: COVID-19 immunisation
     Route: 030

REACTIONS (12)
  - Joint effusion [Unknown]
  - Osteoarthritis [Unknown]
  - Exostosis [Unknown]
  - Joint space narrowing [Unknown]
  - Dandruff [Unknown]
  - Muscle atrophy [Unknown]
  - Muscle twitching [Unknown]
  - Fall [Unknown]
  - Bone disorder [Unknown]
  - Psoriasis [Unknown]
  - Chest pain [Unknown]
  - Arthralgia [Unknown]
